FAERS Safety Report 6031005-5 (Version None)
Quarter: 2009Q1

REPORT INFORMATION
  Report Type: 
  Country: None (occurrence: None)
  Receive Date: 20090106
  Receipt Date: 20090106
  Transmission Date: 20090719
  Serious: No
  Sender: FDA-Public Use
  Company Number: None

PATIENT
  Sex: Male
  Weight: 81.6475 kg

DRUGS (1)
  1. SEROQUEL [Suspect]
     Indication: BIPOLAR DISORDER
     Dosage: 2 200MG TABLETS AT NIGHT PO
     Route: 048
     Dates: start: 20001001, end: 20080105

REACTIONS (3)
  - ARTHRALGIA [None]
  - INSOMNIA [None]
  - MYALGIA [None]
